FAERS Safety Report 4274518-9 (Version None)
Quarter: 2004Q1

REPORT INFORMATION
  Report Type: 
  Country: None (occurrence: None)
  Receive Date: 20040120
  Receipt Date: 20031203
  Transmission Date: 20041129
  Serious: Yes (Other)
  Sender: FDA-Public Use
  Company Number: GB-ROCHE-353739

PATIENT
  Age: 19 Year
  Sex: Female
  Weight: 55 kg

DRUGS (1)
  1. NEOTIGASON [Suspect]
     Indication: DRUG USE FOR UNKNOWN INDICATION
     Dosage: ACITRETIN TAKEN ERRATICALLY FROM SEP 2003 TO OCT 2003.
     Route: 048
     Dates: start: 20030715, end: 20031015

REACTIONS (2)
  - NO ADVERSE EFFECT [None]
  - PREGNANCY [None]
